FAERS Safety Report 6610184-2 (Version None)
Quarter: 2010Q1

REPORT INFORMATION
  Report Type: 
  Country: None (occurrence: None)
  Receive Date: 20100302
  Receipt Date: 20100224
  Transmission Date: 20100710
  Serious: Yes (Death, Hospitalization)
  Sender: FDA-Public Use
  Company Number: KR-ELI_LILLY_AND_COMPANY-KR201002006903

PATIENT
  Sex: Male
  Weight: 74.1 kg

DRUGS (6)
  1. PEMETREXED [Suspect]
     Indication: NON-SMALL CELL LUNG CANCER
     Dosage: 500 MG/M2, UNK
     Route: 042
     Dates: start: 20080421
  2. FOLIC ACID [Concomitant]
     Indication: PROPHYLAXIS
     Dosage: 1 MG, DAILY (1/D)
     Route: 048
     Dates: start: 20080421, end: 20080516
  3. VITAMIN B-12 [Concomitant]
     Indication: PROPHYLAXIS
     Dosage: 1000 UG, ONCE
     Route: 030
     Dates: start: 20080421, end: 20080421
  4. DEXAMETHASONE [Concomitant]
     Indication: PROPHYLAXIS
     Dosage: 5 MG, ONCE
     Route: 042
     Dates: start: 20080421, end: 20080421
  5. PREDNISOLONE [Concomitant]
     Indication: PROPHYLAXIS
     Dosage: 7.5 MG, 2/D
     Dates: start: 20080420, end: 20080519
  6. CORTICOSTEROIDS [Concomitant]
     Indication: DYSPNOEA

REACTIONS (2)
  - BRONCHIAL OBSTRUCTION [None]
  - PNEUMONIA [None]
